FAERS Safety Report 19780316 (Version 1)
Quarter: 2021Q3

REPORT INFORMATION
  Report Type: Spontaneous
  Country: US (occurrence: US)
  Receive Date: 20210902
  Receipt Date: 20210902
  Transmission Date: 20211014
  Serious: No
  Sender: FDA-Public Use
  Company Number: US-MYLANLABS-2021M1055547

PATIENT
  Sex: Female
  Weight: 69 kg

DRUGS (1)
  1. XULANE [Suspect]
     Active Substance: ETHINYL ESTRADIOL\NORELGESTROMIN
     Indication: CONTRACEPTION
     Dosage: 1 PATCH WEEKLY FOR 3 WEEKS THEN 1 WEEK OFF
     Route: 062
     Dates: start: 202004

REACTIONS (3)
  - Application site discolouration [Not Recovered/Not Resolved]
  - Application site eczema [Not Recovered/Not Resolved]
  - Application site pruritus [Not Recovered/Not Resolved]
